FAERS Safety Report 8558963 (Version 2)
Quarter: 2015Q1

REPORT INFORMATION
  Report Type: Spontaneous
  Country: US (occurrence: US)
  Receive Date: 20120511
  Receipt Date: 20150219
  Transmission Date: 20150721
  Serious: Yes (Death, Other)
  Sender: FDA-Public Use
  Company Number: US-GLAXOSMITHKLINE-A0957807A

PATIENT
  Sex: Female

DRUGS (6)
  1. TYKERB [Suspect]
     Active Substance: LAPATINIB DITOSYLATE
     Indication: PRODUCT USED FOR UNKNOWN INDICATION
     Dosage: 1250 MG, QD
     Route: 048
  2. LUPRON DEPOT [Concomitant]
     Active Substance: LEUPROLIDE ACETATE
  3. VITAMIN B12 [Concomitant]
     Active Substance: CYANOCOBALAMIN
  4. METOPROLOL [Concomitant]
     Active Substance: METOPROLOL
  5. XELODA [Concomitant]
     Active Substance: CAPECITABINE
  6. HERCEPTIN [Concomitant]
     Active Substance: TRASTUZUMAB

REACTIONS (7)
  - Death [Fatal]
  - Skin exfoliation [Unknown]
  - Nail disorder [Unknown]
  - Bone pain [Unknown]
  - Skin fissures [Unknown]
  - Dysgeusia [Unknown]
  - Decreased appetite [Unknown]
